FAERS Safety Report 7225542-5 (Version None)
Quarter: 2011Q1

REPORT INFORMATION
  Report Type: 
  Country: None (occurrence: None)
  Receive Date: 20110113
  Receipt Date: 20101231
  Transmission Date: 20110831
  Serious: No
  Sender: FDA-Public Use
  Company Number: US-B.I. PHARMACEUTICALS,INC./RIDGEFIELD-2011-BP-00400BP

PATIENT
  Sex: Female

DRUGS (8)
  1. METOPROLOL [Concomitant]
  2. ASPIRIN [Concomitant]
  3. PLAVIX [Concomitant]
  4. PREMARIN [Concomitant]
  5. PRADAXA [Suspect]
     Indication: ATRIAL FIBRILLATION
     Dosage: 300 MG
     Route: 048
     Dates: start: 20101201
  6. AMLODIPINE [Concomitant]
  7. BENAZEPRIL HYDROCHLORIDE [Concomitant]
  8. SERTRALINE [Concomitant]

REACTIONS (4)
  - PAIN IN EXTREMITY [None]
  - DEPRESSION [None]
  - OEDEMA PERIPHERAL [None]
  - JOINT SWELLING [None]
